FAERS Safety Report 9233432 (Version 1)
Quarter: 2013Q2

REPORT INFORMATION
  Report Type: Spontaneous
  Country: US (occurrence: US)
  Receive Date: 20130416
  Receipt Date: 20130416
  Transmission Date: 20140414
  Serious: No
  Sender: FDA-Public Use
  Company Number: US-BANPHARM-20120044

PATIENT
  Age: 45 Year
  Sex: Female
  Weight: 104 kg

DRUGS (4)
  1. ALEVE LIQUID GELS 220 MG [Suspect]
     Indication: BACK PAIN
     Dosage: 1 DF, ONCE,
     Route: 048
     Dates: start: 20120712, end: 20120712
  2. MYCARDITIS [Concomitant]
  3. DEXILANT [Concomitant]
  4. MULTIVITAMIN [Concomitant]

REACTIONS (3)
  - Glossodynia [Recovered/Resolved]
  - Oral discomfort [Recovered/Resolved]
  - Capsule physical issue [Not Recovered/Not Resolved]
